FAERS Safety Report 9846467 (Version 1)
Quarter: 2014Q1

REPORT INFORMATION
  Report Type: Spontaneous
  Country: US (occurrence: None)
  Receive Date: 20140123
  Receipt Date: 20140123
  Transmission Date: 20141002
  Serious: Yes (Other)
  Sender: FDA-Public Use
  Company Number: None

PATIENT
  Age: 57 Year
  Sex: Male
  Weight: 108.86 kg

DRUGS (1)
  1. AZITHROMYCIN 250 MG TEVA USA [Suspect]
     Indication: BRONCHITIS
     Dosage: 2 INITIAL THEN 1 DAILY  TAKEN BY MOUTH
     Route: 048
     Dates: start: 20140120, end: 20140120

REACTIONS (1)
  - Bronchitis [None]
